FAERS Safety Report 5165887-6 (Version None)
Quarter: 2006Q4

REPORT INFORMATION
  Report Type: 
  Country: None (occurrence: None)
  Receive Date: 20061128
  Receipt Date: 20061117
  Transmission Date: 20070319
  Serious: Yes (Death, Hospitalization)
  Sender: FDA-Public Use
  Company Number: 430037M05USA

PATIENT
  Age: 33 Year
  Sex: Female

DRUGS (10)
  1. NOVANTRONE [Suspect]
     Indication: MULTIPLE SCLEROSIS
     Dosage: SEE IMAGE
     Route: 042
     Dates: start: 20020301, end: 20030301
  2. NOVANTRONE [Suspect]
     Indication: MULTIPLE SCLEROSIS
     Dosage: SEE IMAGE
     Route: 042
     Dates: start: 20030301, end: 20040316
  3. REBIF [Suspect]
     Indication: MULTIPLE SCLEROSIS
     Dosage: 44 MCG, 3 IN 1 WEEKS, SUBCUTANEOUS
     Route: 058
     Dates: start: 20040501, end: 20050901
  4. CORTICOSTEROIDS (CORTICOSTEROIDS) [Concomitant]
  5. AVONEX [Concomitant]
  6. NEURONTIN [Concomitant]
  7. OXYBUTYNIN (OXYBUTYNIN /00538901/) [Concomitant]
  8. BACLOFEN [Concomitant]
  9. IBUPROFEN [Concomitant]
  10. CYLERT [Concomitant]

REACTIONS (6)
  - ACUTE MYELOMONOCYTIC LEUKAEMIA [None]
  - FATIGUE [None]
  - GINGIVAL BLEEDING [None]
  - PERITONSILLAR ABSCESS [None]
  - PHARYNGITIS [None]
  - PHARYNGOLARYNGEAL PAIN [None]
